FAERS Safety Report 7342551-6 (Version None)
Quarter: 2011Q1

REPORT INFORMATION
  Report Type: 
  Country: None (occurrence: None)
  Receive Date: 20110310
  Receipt Date: 20110310
  Transmission Date: 20110831
  Serious: Yes (Hospitalization)
  Sender: FDA-Public Use
  Company Number: PHHO2009JP06745

PATIENT
  Sex: Female
  Weight: 48 kg

DRUGS (2)
  1. FTY [Suspect]
     Dosage: 1.25 MG, UNK
     Route: 048
     Dates: start: 20090527
  2. CONSTAN [Concomitant]
     Indication: ANXIETY DISORDER

REACTIONS (1)
  - HEART RATE DECREASED [None]
